FAERS Safety Report 11059807 (Version 1)
Quarter: 2015Q2

REPORT INFORMATION
  Report Type: Spontaneous
  Country: SE (occurrence: SE)
  Receive Date: 20150423
  Receipt Date: 20150423
  Transmission Date: 20150821
  Serious: Yes (Hospitalization)
  Sender: FDA-Public Use
  Company Number: SE-TEVA-556951ISR

PATIENT
  Age: 61 Year
  Sex: Male

DRUGS (1)
  1. RISPERIDONE PER ORAL [Suspect]
     Active Substance: RISPERIDONE
     Route: 048

REACTIONS (2)
  - Toxicity to various agents [Recovered/Resolved]
  - Suicidal ideation [Recovered/Resolved]
